FAERS Safety Report 9067048 (Version 2)
Quarter: 2013Q1

REPORT INFORMATION
  Report Type: Spontaneous
  Country: US (occurrence: US)
  Receive Date: 20130214
  Receipt Date: 20130321
  Transmission Date: 20140127
  Serious: No
  Sender: FDA-Public Use
  Company Number: US-PFIZER INC-2013057668

PATIENT
  Age: 65 Year
  Sex: Female
  Weight: 81.63 kg

DRUGS (7)
  1. LYRICA [Suspect]
     Indication: FIBROMYALGIA
     Dosage: 50 MG, 3X/DAY
     Route: 048
  2. LYRICA [Suspect]
     Indication: NEUROPATHY PERIPHERAL
  3. TIKOSYN [Suspect]
     Indication: ATRIAL FIBRILLATION
     Dosage: 500 UG, 2X/DAY
     Route: 048
     Dates: start: 201006
  4. ATENOLOL [Concomitant]
     Indication: HEART RATE ABNORMAL
     Dosage: UNK
  5. CITALOPRAM [Concomitant]
     Indication: DEPRESSION
     Dosage: 20 MG, 1X/DAY
  6. PRADAXA [Concomitant]
     Indication: ANTICOAGULANT THERAPY
     Dosage: UNK
  7. LEVOTHYROXINE [Concomitant]
     Indication: THYROID DISORDER
     Dosage: UNK

REACTIONS (4)
  - Influenza [Recovering/Resolving]
  - Malaise [Recovering/Resolving]
  - Cough [Recovering/Resolving]
  - Nasal mucosal disorder [Recovering/Resolving]
